FAERS Safety Report 10889759 (Version 3)
Quarter: 2015Q1

REPORT INFORMATION
  Report Type: Spontaneous
  Country: BG (occurrence: BG)
  Receive Date: 20150306
  Receipt Date: 20150325
  Transmission Date: 20150721
  Serious: Yes (Other)
  Sender: FDA-Public Use
  Company Number: BG-ROCHE-1548157

PATIENT
  Age: 74 Year
  Sex: Male

DRUGS (1)
  1. XOLAIR [Suspect]
     Active Substance: OMALIZUMAB
     Indication: CHRONIC SPONTANEOUS URTICARIA
     Dosage: 09 FEB 2015 AT A DOSE OF 300 MG (2 DOSES OF 150 MG IN THE SAME DAY WITH HALF AN HOUR INTERVAL BETWEE
     Route: 058
     Dates: start: 20150209

REACTIONS (2)
  - Urticaria [Recovering/Resolving]
  - Blood glucose increased [Unknown]
